FAERS Safety Report 5774424-4 (Version None)
Quarter: 2008Q2

REPORT INFORMATION
  Report Type: 
  Country: None (occurrence: None)
  Receive Date: 20080616
  Receipt Date: 20080604
  Transmission Date: 20081010
  Serious: Yes (Death, Other)
  Sender: FDA-Public Use
  Company Number: IN-PFIZER INC-2008044334

PATIENT
  Age: 23 Year
  Sex: Male
  Weight: 75 kg

DRUGS (4)
  1. MAGNEX [Suspect]
     Indication: PERITONITIS
     Route: 042
     Dates: start: 20080514, end: 20080516
  2. METRONIDAZOLE [Concomitant]
     Route: 042
  3. AMIKACIN [Concomitant]
     Route: 042
  4. VITAMIN K TAB [Concomitant]
     Route: 042

REACTIONS (2)
  - PLATELET COUNT DECREASED [None]
  - SEPTIC SHOCK [None]
